FAERS Safety Report 8583660-3 (Version None)
Quarter: 2012Q3

REPORT INFORMATION
  Report Type: 
  Country: None (occurrence: None)
  Receive Date: 20120809
  Receipt Date: 20120702
  Transmission Date: 20120928
  Serious: Yes (Hospitalization, Other)
  Sender: FDA-Public Use
  Company Number: US-009507513-2012SP011854

PATIENT
  Sex: Female
  Weight: 86.18 kg

DRUGS (3)
  1. NUVARING [Suspect]
     Dates: start: 20090801, end: 20100101
  2. NUVARING [Suspect]
     Indication: CONTRACEPTION
     Dates: start: 20080801, end: 20100301
  3. NUVARING [Suspect]
     Dates: start: 20081215, end: 20090521

REACTIONS (6)
  - EMOTIONAL DISORDER [None]
  - MIGRAINE [None]
  - PULMONARY EMBOLISM [None]
  - HYPOTHYROIDISM [None]
  - DEPRESSION [None]
  - THROMBOSIS [None]
